FAERS Safety Report 5922086-5 (Version None)
Quarter: 2008Q4

REPORT INFORMATION
  Report Type: 
  Country: None (occurrence: None)
  Receive Date: 20081017
  Receipt Date: 20081013
  Transmission Date: 20090506
  Serious: Yes (Hospitalization)
  Sender: FDA-Public Use
  Company Number: B0541964A

PATIENT
  Age: 63 Year
  Sex: Female
  Weight: 58 kg

DRUGS (6)
  1. LAPATINIB [Suspect]
     Indication: BREAST CANCER
     Dosage: 1250MG PER DAY
     Route: 048
     Dates: start: 20080407
  2. PACLITAXEL [Suspect]
     Indication: BREAST CANCER
     Dosage: 175MG CYCLIC
     Route: 042
     Dates: start: 20080407
  3. MYOCET [Suspect]
     Indication: BREAST CANCER
     Dosage: 60MG CYCLIC
     Route: 042
     Dates: start: 20080407
  4. ALLOPURINOL [Concomitant]
     Dosage: 300MG PER DAY
     Route: 048
     Dates: start: 20080602
  5. DELIX [Concomitant]
     Indication: HYPERTENSION
     Dosage: 5MG PER DAY
     Route: 048
     Dates: start: 20080602
  6. LEVOTHYROXINE SODIUM [Concomitant]
     Indication: HYPERTHYROIDISM
     Dosage: 25UG PER DAY
     Route: 048
     Dates: start: 20080602

REACTIONS (4)
  - C-REACTIVE PROTEIN INCREASED [None]
  - LEUKOPENIA [None]
  - PYREXIA [None]
  - TONSILLITIS [None]
